FAERS Safety Report 14095227 (Version 1)
Quarter: 2017Q4

REPORT INFORMATION
  Report Type: Spontaneous
  Country: ZA (occurrence: ZA)
  Receive Date: 20171016
  Receipt Date: 20171016
  Transmission Date: 20180321
  Serious: Yes (Hospitalization)
  Sender: FDA-Public Use
  Company Number: ZA-MYLANLABS-2017M1063375

PATIENT
  Age: 56 Year
  Sex: Female

DRUGS (9)
  1. ELTROXIN [Suspect]
     Active Substance: LEVOTHYROXINE
     Indication: THYROID DISORDER
     Dosage: 100 ?G, UNK
     Route: 048
  2. LORIEN [Suspect]
     Active Substance: FLUOXETINE HYDROCHLORIDE
     Indication: DEPRESSION
     Dosage: 20 MG, UNK
     Route: 048
  3. TREPILINE [Suspect]
     Active Substance: AMITRIPTYLINE
     Indication: STRESS
     Dosage: 25 MG, UNK
     Route: 048
  4. ALZAM [Suspect]
     Active Substance: ALPRAZOLAM
     Indication: STRESS
     Dosage: 0.5 MG, UNK
     Route: 048
  5. MENOGRAINE [Suspect]
     Active Substance: CLONIDINE HYDROCHLORIDE
     Indication: HORMONE THERAPY
     Dosage: 0.25 MG, UNK
     Route: 048
  6. VUSOR [Suspect]
     Active Substance: ROSUVASTATIN CALCIUM
     Indication: BLOOD CHOLESTEROL ABNORMAL
     Dosage: 5 MG, UNK
     Route: 048
  7. ASPEN TRAZODONE [Suspect]
     Active Substance: TRAZODONE HYDROCHLORIDE
     Indication: DEPRESSION
     Dosage: 50 MG, UNK
     Route: 048
  8. SLOW K [Suspect]
     Active Substance: POTASSIUM CHLORIDE
     Indication: BLOOD POTASSIUM ABNORMAL
     Dosage: 600 MG, UNK
     Route: 048
  9. MYLAN FUROSEMIDE 40 [Suspect]
     Active Substance: FUROSEMIDE
     Indication: DIURETIC THERAPY
     Dosage: 40 MG, UNK
     Route: 048

REACTIONS (2)
  - Venous occlusion [Unknown]
  - Blood cholesterol increased [Unknown]
